FAERS Safety Report 10100050 (Version 1)
Quarter: 2014Q2

REPORT INFORMATION
  Report Type: Spontaneous
  Country: US (occurrence: US)
  Receive Date: 20140423
  Receipt Date: 20140423
  Transmission Date: 20141212
  Serious: No
  Sender: FDA-Public Use
  Company Number: US-GILEAD-2013-0074205

PATIENT
  Age: 40 Year
  Sex: Female

DRUGS (2)
  1. LETAIRIS [Suspect]
     Indication: PRODUCT USED FOR UNKNOWN INDICATION
     Dosage: 5 MG, QD
     Dates: start: 20111109
  2. REVATIO [Concomitant]

REACTIONS (4)
  - Syncope [Unknown]
  - Colonoscopy [Unknown]
  - X-ray with contrast upper gastrointestinal tract [Unknown]
  - Feeling abnormal [Not Recovered/Not Resolved]
